FAERS Safety Report 6345775-X (Version None)
Quarter: 2009Q3

REPORT INFORMATION
  Report Type: 
  Country: None (occurrence: None)
  Receive Date: 20090821
  Receipt Date: 20090618
  Transmission Date: 20100115
  Serious: No
  Sender: FDA-Public Use
  Company Number: 8048031

PATIENT
  Age: 30 Year
  Sex: Female
  Weight: 56.8 kg

DRUGS (10)
  1. CIMZIA [Suspect]
     Indication: CROHN'S DISEASE
     Dosage: 400 MG SC
     Route: 058
     Dates: start: 20090602
  2. IMURAN [Concomitant]
  3. TYLENOL (CAPLET) [Concomitant]
  4. VITAMIN A [Concomitant]
  5. VITAMIN D [Concomitant]
  6. LASIX [Concomitant]
  7. SULFASALAZINE [Concomitant]
  8. OMEPRAZOLE [Concomitant]
  9. XANAX [Concomitant]
  10. LEVOTHROID [Concomitant]

REACTIONS (1)
  - PYREXIA [None]
